FAERS Safety Report 5400908-4 (Version None)
Quarter: 2007Q3

REPORT INFORMATION
  Report Type: 
  Country: None (occurrence: None)
  Receive Date: 20070730
  Receipt Date: 20060726
  Transmission Date: 20080115
  Serious: No
  Sender: FDA-Public Use
  Company Number: A0612484A

PATIENT
  Age: 7 Year
  Sex: Female

DRUGS (2)
  1. ZANTAC 150 [Suspect]
     Indication: DRUG USE FOR UNKNOWN INDICATION
     Dosage: .75TSP SINGLE DOSE
     Route: 048
     Dates: start: 20060713, end: 20060713
  2. NO CONCURRENT MEDICATION [Concomitant]

REACTIONS (2)
  - RETCHING [None]
  - VOMITING [None]
